FAERS Safety Report 22201881 (Version 1)
Quarter: 2023Q2

REPORT INFORMATION
  Report Type: Report from Study
  Country: VN (occurrence: VN)
  Receive Date: 20230412
  Receipt Date: 20230412
  Transmission Date: 20230721
  Serious: Yes (Other)
  Sender: FDA-Public Use
  Company Number: VN-BAYER-2023A044869

PATIENT
  Age: 59 Year
  Sex: Male

DRUGS (1)
  1. STIVARGA [Suspect]
     Active Substance: REGORAFENIB
     Indication: Colorectal cancer metastatic
     Dosage: 120 MG, QD, EVERY 3 WEEKS AND 1 WEEK OFF
     Route: 048
     Dates: start: 20230203

REACTIONS (2)
  - Face oedema [Recovering/Resolving]
  - Off label use [None]

NARRATIVE: CASE EVENT DATE: 20230203
